FAERS Safety Report 5588028-X (Version None)
Quarter: 2008Q1

REPORT INFORMATION
  Report Type: 
  Country: None (occurrence: None)
  Receive Date: 20080111
  Receipt Date: 20071228
  Transmission Date: 20080703
  Serious: Yes (Other)
  Sender: FDA-Public Use
  Company Number: GB-PFIZER INC-2008000366

PATIENT
  Sex: Male

DRUGS (1)
  1. VORICONAZOLE [Suspect]
     Indication: PROPHYLAXIS
     Dates: start: 20070101, end: 20071227

REACTIONS (3)
  - AGGRESSION [None]
  - AGITATION [None]
  - NERVOUS SYSTEM DISORDER [None]
